FAERS Safety Report 10026989 (Version 4)
Quarter: 2014Q2

REPORT INFORMATION
  Report Type: Spontaneous
  Country: JP (occurrence: JP)
  Receive Date: 20140321
  Receipt Date: 20140623
  Transmission Date: 20141212
  Serious: Yes (Hospitalization, Other)
  Sender: FDA-Public Use
  Company Number: JP-JNJFOC-20140304737

PATIENT
  Age: 53 Year
  Sex: Male
  Weight: 56 kg

DRUGS (24)
  1. TRAMCET [Suspect]
     Indication: CHEST PAIN
     Route: 065
     Dates: end: 20131112
  2. ERLOTINIB [Suspect]
     Indication: NON-SMALL CELL LUNG CANCER
     Dosage: 150 MG ONCE DAILY
     Route: 065
     Dates: start: 20120705, end: 20131112
  3. ERLOTINIB [Suspect]
     Indication: NON-SMALL CELL LUNG CANCER
     Route: 065
     Dates: start: 20120705, end: 20131112
  4. DACOMITINIB [Suspect]
     Indication: NON-SMALL CELL LUNG CANCER
     Dosage: 45 MG
     Route: 065
     Dates: start: 20120705, end: 20131113
  5. PLACEBO [Suspect]
     Indication: NON-SMALL CELL LUNG CANCER
     Route: 065
     Dates: start: 20120705, end: 20131112
  6. PLACEBO [Suspect]
     Indication: NON-SMALL CELL LUNG CANCER
     Route: 065
     Dates: start: 20120705, end: 20131112
  7. ETIZOLAM [Concomitant]
     Route: 065
  8. QUAZEPAM [Concomitant]
     Route: 065
  9. MIRTAZAPINE [Concomitant]
     Indication: DEPRESSION
     Route: 065
  10. HEPARINOID [Concomitant]
     Route: 065
     Dates: start: 20120709
  11. CLOBETASOL PROPIONATE [Concomitant]
     Route: 065
     Dates: start: 20120709
  12. DERMOVATE [Concomitant]
     Indication: DERMATITIS ACNEIFORM
     Route: 065
     Dates: start: 20120709
  13. ALLEGRA [Concomitant]
     Route: 065
     Dates: start: 20120711
  14. RINDERON-V [Concomitant]
     Route: 065
     Dates: start: 20120711
  15. LOXOPROFEN SODIUM [Concomitant]
     Indication: HEADACHE
     Route: 065
     Dates: start: 20120705
  16. LOXOPROFEN SODIUM [Concomitant]
     Indication: CHEST PAIN
     Route: 065
     Dates: start: 20120705
  17. LACTOBACILLUS BIFIDUS, LYOPHILIZED [Concomitant]
     Indication: BOWEL MOVEMENT IRREGULARITY
     Route: 065
     Dates: start: 20120706
  18. OPSO [Concomitant]
     Indication: CHEST PAIN
     Route: 065
     Dates: start: 20120808
  19. CELESTAN [Concomitant]
     Indication: DERMATITIS ACNEIFORM
     Route: 065
     Dates: start: 20120820
  20. LYRICA [Concomitant]
     Indication: CHEST PAIN
     Route: 065
     Dates: start: 20121001
  21. MAGLAX [Concomitant]
     Indication: CONSTIPATION
     Route: 065
     Dates: start: 20121218
  22. MINOMYCIN [Concomitant]
     Indication: DERMATITIS ACNEIFORM
     Route: 065
     Dates: start: 20130108
  23. PRIMPERAN [Concomitant]
     Indication: NAUSEA
     Route: 065
     Dates: start: 20130412
  24. FLUNITRAZEPAM [Concomitant]
     Indication: DEPRESSION
     Route: 065
     Dates: start: 20130827

REACTIONS (6)
  - Non-small cell lung cancer [Unknown]
  - Pleural effusion [Unknown]
  - Decreased appetite [Recovered/Resolved]
  - Fluid intake reduced [Recovering/Resolving]
  - Nausea [Recovering/Resolving]
  - Vomiting [Recovering/Resolving]
